FAERS Safety Report 21099111 (Version 2)
Quarter: 2022Q3

REPORT INFORMATION
  Report Type: Spontaneous
  Country: IT (occurrence: IT)
  Receive Date: 20220719
  Receipt Date: 20220805
  Transmission Date: 20221026
  Serious: Yes (Hospitalization)
  Sender: FDA-Public Use
  Company Number: IT-BAUSCH-BL-2022-017694

PATIENT
  Age: 7 Day
  Sex: Female
  Weight: 3.08 kg

DRUGS (1)
  1. VENLAFAXINE [Suspect]
     Active Substance: VENLAFAXINE HYDROCHLORIDE
     Indication: Product used for unknown indication
     Route: 063

REACTIONS (4)
  - Toxicity to various agents [Recovered/Resolved]
  - Weight gain poor [Recovered/Resolved]
  - Neonatal oversedation [Recovered/Resolved]
  - Exposure via breast milk [Unknown]
